FAERS Safety Report 7758957-7 (Version None)
Quarter: 2011Q3

REPORT INFORMATION
  Report Type: 
  Country: None (occurrence: None)
  Receive Date: 20110919
  Receipt Date: 20110909
  Transmission Date: 20111222
  Serious: Yes (Other)
  Sender: FDA-Public Use
  Company Number: GR-ASTELLAS-2011US005822

PATIENT
  Age: 6 Year
  Sex: Female

DRUGS (2)
  1. AMBISOME [Suspect]
     Indication: ANTIFUNGAL PROPHYLAXIS
  2. AMBISOME [Suspect]
     Indication: FEBRILE BONE MARROW APLASIA
     Dosage: 50 MG, UID/QD
     Route: 042
     Dates: start: 20100814

REACTIONS (3)
  - LARYNGEAL OEDEMA [None]
  - LIP OEDEMA [None]
  - DYSPNOEA [None]
